FAERS Safety Report 8584075-4 (Version None)
Quarter: 2012Q3

REPORT INFORMATION
  Report Type: 
  Country: None (occurrence: None)
  Receive Date: 20120810
  Receipt Date: 20120727
  Transmission Date: 20120928
  Serious: Yes (Life-Threatening, Disabling, Other)
  Sender: FDA-Public Use
  Company Number: US-009507513-1206USA03280

PATIENT

DRUGS (14)
  1. OMEGA-3-ACID ETHYL ESTERS [Concomitant]
  2. TRILIPIX [Concomitant]
  3. AVAPRO [Concomitant]
  4. VYTORIN [Suspect]
     Indication: BLOOD CHOLESTEROL
     Dosage: 1 DF, QD
     Route: 048
     Dates: start: 20100324, end: 20120122
  5. MK-9278 [Concomitant]
  6. MK-0805 [Concomitant]
  7. AVAPRO [Concomitant]
  8. POTASSIUM CHLORIDE [Concomitant]
  9. DILTIAZEM HCL [Concomitant]
  10. ASPIRIN [Concomitant]
  11. LEXAPRO [Concomitant]
  12. ALAVERT [Concomitant]
  13. PEPCID [Concomitant]
     Route: 048
  14. CARDURA [Concomitant]

REACTIONS (1)
  - DYSPNOEA [None]
